FAERS Safety Report 24874311 (Version 3)
Quarter: 2025Q1

REPORT INFORMATION
  Report Type: Spontaneous
  Country: CA (occurrence: CA)
  Receive Date: 20250122
  Receipt Date: 20250214
  Transmission Date: 20250409
  Serious: Yes (Death)
  Sender: PFIZER
  Company Number: CA-PFIZER INC-202300355368

PATIENT
  Age: 65 Year
  Sex: Male

DRUGS (3)
  1. ABRILADA [Suspect]
     Active Substance: ADALIMUMAB-AFZB
     Indication: Crohn^s disease
     Route: 058
     Dates: start: 20231120
  2. BISOPROLOL [Concomitant]
     Active Substance: BISOPROLOL
  3. COUMADIN [Concomitant]
     Active Substance: WARFARIN SODIUM

REACTIONS (5)
  - Pneumonia [Fatal]
  - Cardiac valve disease [Fatal]
  - Drug ineffective [Unknown]
  - Wrong product administered [Unknown]
  - Pain [Unknown]

NARRATIVE: CASE EVENT DATE: 20231201
